FAERS Safety Report 15020650 (Version 5)
Quarter: 2019Q4

REPORT INFORMATION
  Report Type: Report from Study
  Country: JP (occurrence: JP)
  Receive Date: 20180618
  Receipt Date: 20191220
  Transmission Date: 20200122
  Serious: Yes (Death, Life-Threatening, Other)
  Sender: FDA-Public Use
  Company Number: JP-BEH-2018091821

PATIENT
  Age: 89 Year
  Sex: Female
  Weight: 35 kg

DRUGS (21)
  1. OMEPRAZOLE. [Concomitant]
     Active Substance: OMEPRAZOLE
     Indication: PROPHYLAXIS AGAINST GASTROINTESTINAL ULCER
     Dosage: UNK
     Route: 048
     Dates: start: 20180302, end: 20180303
  2. NORADRENALINE                      /00127501/ [Concomitant]
     Active Substance: NOREPINEPHRINE
     Indication: BLOOD PRESSURE MANAGEMENT
     Dosage: UNK
     Route: 065
     Dates: start: 20180302, end: 20180302
  3. ROCURONIUM BROMIDE. [Concomitant]
     Active Substance: ROCURONIUM BROMIDE
     Indication: HYPOTONIA
     Dosage: UNK
     Route: 065
     Dates: start: 20180302, end: 20180302
  4. POTASSIUM CHLORIDE. [Concomitant]
     Active Substance: POTASSIUM CHLORIDE
     Indication: BLOOD POTASSIUM ABNORMAL
     Dosage: UNK
     Route: 065
     Dates: start: 20180302, end: 20180302
  5. BERIPLEX P/N [Suspect]
     Active Substance: COAGULATION FACTOR IX HUMAN\COAGULATION FACTOR VII HUMAN\COAGULATION FACTOR X HUMAN\PROTEIN C\PROTEIN S HUMAN\PROTHROMBIN
     Indication: HAEMORRHAGE
     Dosage: 1500 IU, UNK
     Route: 042
     Dates: start: 20180302
  6. BERIPLEX P/N [Suspect]
     Active Substance: COAGULATION FACTOR IX HUMAN\COAGULATION FACTOR VII HUMAN\COAGULATION FACTOR X HUMAN\PROTEIN C\PROTEIN S HUMAN\PROTHROMBIN
     Indication: SURGERY
     Dosage: UNK
     Route: 042
  7. NICARDIPINE [Concomitant]
     Active Substance: NICARDIPINE
     Indication: HYPERTENSION
     Dosage: UNK
     Route: 065
     Dates: start: 20180303, end: 20180303
  8. BERIPLEX P/N [Suspect]
     Active Substance: COAGULATION FACTOR IX HUMAN\COAGULATION FACTOR VII HUMAN\COAGULATION FACTOR X HUMAN\PROTEIN C\PROTEIN S HUMAN\PROTHROMBIN
     Indication: HAEMORRHAGE
     Dosage: 1500 IU, UNK
     Route: 042
     Dates: start: 20180302
  9. WARFARIN [Concomitant]
     Active Substance: WARFARIN
     Indication: ATRIAL FIBRILLATION
     Dosage: 1.5 MG, UNK
     Route: 048
     Dates: end: 20180225
  10. FENTANYL. [Concomitant]
     Active Substance: FENTANYL
     Indication: ANALGESIC THERAPY
     Dosage: UNK
     Route: 065
     Dates: start: 20180302, end: 20180305
  11. HEPARIN [Concomitant]
     Active Substance: HEPARIN SODIUM
     Dosage: UNK
     Route: 065
     Dates: end: 20180301
  12. XYLOCAINE [Concomitant]
     Active Substance: LIDOCAINE HYDROCHLORIDE
     Indication: ANAESTHESIA
     Dosage: UNK
     Route: 065
     Dates: start: 20180302, end: 20180302
  13. CALCICOL [Concomitant]
     Active Substance: CALCIUM GLUCONATE
     Indication: BLOOD CALCIUM ABNORMAL
     Dosage: UNK
     Route: 065
     Dates: start: 20180302, end: 20180302
  14. CEFAZOLIN [Concomitant]
     Active Substance: CEFAZOLIN
     Indication: INFECTION PROPHYLAXIS
     Dosage: UNK
     Route: 065
     Dates: start: 20180302, end: 20180303
  15. NEOSYNESIN                         /00116302/ [Concomitant]
     Indication: BLOOD PRESSURE MANAGEMENT
     Dosage: UNK
     Route: 065
     Dates: start: 20180302, end: 20180302
  16. ACETAMINOPHEN. [Concomitant]
     Active Substance: ACETAMINOPHEN
     Indication: PROPHYLAXIS
     Dosage: UNK
     Route: 065
     Dates: start: 20180302, end: 20180302
  17. BERIPLEX P/N [Suspect]
     Active Substance: COAGULATION FACTOR IX HUMAN\COAGULATION FACTOR VII HUMAN\COAGULATION FACTOR X HUMAN\PROTEIN C\PROTEIN S HUMAN\PROTHROMBIN
     Indication: SURGERY
     Dosage: UNK
     Route: 042
  18. WARFARIN [Concomitant]
     Active Substance: WARFARIN
     Indication: PROPHYLAXIS
     Dosage: 1.5 UNK, UNK
     Route: 048
  19. ACETAMINOPHEN. [Concomitant]
     Active Substance: ACETAMINOPHEN
     Indication: PYREXIA
  20. DOBUPUM [Concomitant]
     Active Substance: DOBUTAMINE HYDROCHLORIDE
     Indication: BLOOD PRESSURE MANAGEMENT
     Dosage: UNK
     Route: 065
     Dates: start: 20180302, end: 20180302
  21. LIXIANA [Concomitant]
     Active Substance: EDOXABAN TOSYLATE
     Dosage: UNK
     Route: 048
     Dates: start: 20180301, end: 20180302

REACTIONS (8)
  - Blood pressure decreased [Recovered/Resolved]
  - Hypocalcaemia [Recovered/Resolved]
  - Hypokalaemia [Recovered/Resolved]
  - Product use in unapproved indication [Unknown]
  - Blood pressure increased [Recovered/Resolved]
  - Subdural haematoma [Fatal]
  - No adverse event [Unknown]
  - Pyrexia [Recovered/Resolved]

NARRATIVE: CASE EVENT DATE: 20180302
